FAERS Safety Report 17151201 (Version 2)
Quarter: 2019Q4

REPORT INFORMATION
  Report Type: Spontaneous
  Country: IT (occurrence: IT)
  Receive Date: 20191213
  Receipt Date: 20191219
  Transmission Date: 20200122
  Serious: Yes (Hospitalization)
  Sender: FDA-Public Use
  Company Number: NVSC2019IT002152

PATIENT
  Age: 38 Year
  Sex: Female

DRUGS (9)
  1. KETOROLAC [Suspect]
     Active Substance: KETOROLAC TROMETHAMINE
     Indication: NEPHRITIS BACTERIAL
  2. CEFTRIAXONE. [Concomitant]
     Active Substance: CEFTRIAXONE
     Indication: NEPHRITIS BACTERIAL
     Dosage: UNK
     Route: 065
  3. FUROSEMIDE. [Suspect]
     Active Substance: FUROSEMIDE
     Route: 065
  4. FUROSEMIDE. [Suspect]
     Active Substance: FUROSEMIDE
     Indication: OEDEMA
     Dosage: UNK
     Route: 065
  5. FUROSEMIDE. [Suspect]
     Active Substance: FUROSEMIDE
     Route: 065
  6. KETOROLAC [Suspect]
     Active Substance: KETOROLAC TROMETHAMINE
     Indication: ESCHERICHIA INFECTION
  7. FUROSEMIDE. [Suspect]
     Active Substance: FUROSEMIDE
     Route: 065
  8. CEFTRIAXONE. [Concomitant]
     Active Substance: CEFTRIAXONE
     Indication: ESCHERICHIA INFECTION
  9. KETOROLAC [Suspect]
     Active Substance: KETOROLAC TROMETHAMINE
     Indication: NEPHRITIS
     Dosage: UNK
     Route: 065

REACTIONS (6)
  - Ascites [Recovering/Resolving]
  - Weight increased [Recovering/Resolving]
  - Oedema [Unknown]
  - Face oedema [Unknown]
  - Oedema peripheral [Unknown]
  - Pleural effusion [Recovering/Resolving]
